FAERS Safety Report 17223113 (Version 3)
Quarter: 2020Q1

REPORT INFORMATION
  Report Type: Report from Study
  Country: None (occurrence: US)
  Receive Date: 20200102
  Receipt Date: 20200211
  Transmission Date: 20200409
  Serious: Yes (Other)
  Sender: FDA-Public Use
  Company Number: US-ABBVIE-19P-163-3170986-00

PATIENT
  Age: 66 Year
  Sex: Male

DRUGS (4)
  1. IMBRUVICA [Suspect]
     Active Substance: IBRUTINIB
     Indication: CHRONIC LYMPHOCYTIC LEUKAEMIA
     Route: 048
     Dates: start: 20190614, end: 20191207
  2. CALQUENCE [Suspect]
     Active Substance: ACALABRUTINIB
     Indication: CHRONIC LYMPHOCYTIC LEUKAEMIA
     Route: 048
     Dates: start: 20191216
  3. CALQUENCE [Suspect]
     Active Substance: ACALABRUTINIB
     Route: 048
     Dates: start: 20191213
  4. IMBRUVICA [Suspect]
     Active Substance: IBRUTINIB
     Route: 048
     Dates: start: 20190613, end: 20191126

REACTIONS (26)
  - Testis cancer [Not Recovered/Not Resolved]
  - Drug ineffective [Unknown]
  - Haemorrhage [Unknown]
  - Myalgia [Unknown]
  - Dysuria [Not Recovered/Not Resolved]
  - Diarrhoea [Unknown]
  - Nausea [Unknown]
  - Headache [Not Recovered/Not Resolved]
  - Prostate cancer [Not Recovered/Not Resolved]
  - Atrial fibrillation [Unknown]
  - Hypoaesthesia [Unknown]
  - Ear infection [Recovering/Resolving]
  - Pharyngitis [Recovering/Resolving]
  - Fatigue [Unknown]
  - Adverse drug reaction [Unknown]
  - Gastrooesophageal reflux disease [Not Recovered/Not Resolved]
  - Bronchitis [Recovering/Resolving]
  - Rhinitis [Recovering/Resolving]
  - Neuropathy peripheral [Unknown]
  - Pruritus [Recovering/Resolving]
  - Rash macular [Recovered/Resolved]
  - Cardiac disorder [Unknown]
  - Arrhythmia [Unknown]
  - Insomnia [Not Recovered/Not Resolved]
  - Bone pain [Recovered/Resolved]
  - Gastroenteritis viral [Recovering/Resolving]

NARRATIVE: CASE EVENT DATE: 202001
